FAERS Safety Report 19849887 (Version 2)
Quarter: 2021Q4

REPORT INFORMATION
  Report Type: Spontaneous
  Country: US (occurrence: US)
  Receive Date: 20210917
  Receipt Date: 20211217
  Transmission Date: 20220303
  Serious: Yes (Hospitalization)
  Sender: FDA-Public Use
  Company Number: US-CATALYST PHARMACEUTICALS, INC-2021CAT00388

PATIENT
  Sex: Male
  Weight: 75.737 kg

DRUGS (9)
  1. FIRDAPSE [Suspect]
     Active Substance: AMIFAMPRIDINE PHOSPHATE
     Indication: Myasthenic syndrome
     Dosage: 70 MG A DAY
     Route: 048
     Dates: start: 201905
  2. FIRDAPSE [Suspect]
     Active Substance: AMIFAMPRIDINE PHOSPHATE
     Dosage: 2 TABLETS (20 MG), 1X/DAY IN THE MORNING
     Route: 048
  3. FIRDAPSE [Suspect]
     Active Substance: AMIFAMPRIDINE PHOSPHATE
     Dosage: 1 AND A HALF TABLETS (15 MG), 1X/DAY IN THE AFTERNOON
     Route: 048
  4. ALOE [Concomitant]
     Active Substance: ALOE
     Dosage: AT NIGHT
  5. VICKS [Concomitant]
     Dosage: AT NIGHT
  6. ADDERALL XR [Concomitant]
     Active Substance: AMPHETAMINE ASPARTATE\AMPHETAMINE SULFATE\DEXTROAMPHETAMINE SACCHARATE\DEXTROAMPHETAMINE SULFATE
  7. VITAMINS [Concomitant]
     Active Substance: VITAMINS
  8. ALBUTEROL [Concomitant]
     Active Substance: ALBUTEROL
  9. MONTELUKAST [Concomitant]
     Active Substance: MONTELUKAST SODIUM

REACTIONS (5)
  - Upper respiratory tract infection [Recovered/Resolved]
  - Sinus congestion [Recovering/Resolving]
  - Respiratory tract congestion [Recovering/Resolving]
  - Nasal congestion [Not Recovered/Not Resolved]
  - COVID-19 [Unknown]

NARRATIVE: CASE EVENT DATE: 20200101
